FAERS Safety Report 9670337 (Version 1)
Quarter: 2013Q4

REPORT INFORMATION
  Report Type: Spontaneous
  Country: JP (occurrence: None)
  Receive Date: 20131104
  Receipt Date: 20131104
  Transmission Date: 20140711
  Serious: Yes (Death, Life-Threatening)
  Sender: FDA-Public Use
  Company Number: SYM-2013-12337

PATIENT
  Age: 73 Year
  Sex: Male
  Weight: 60 kg

DRUGS (14)
  1. FLUOROURACIL [Suspect]
     Indication: COLON CANCER
     Route: 040
     Dates: start: 20110412, end: 20110412
  2. ELPLAT [Suspect]
     Indication: COLON CANCER
     Route: 041
     Dates: start: 20110412, end: 20110412
  3. VECTIBIX [Suspect]
     Indication: COLON CANCER
     Route: 041
     Dates: start: 20110412, end: 20110412
  4. CALCIUM LEVOFOLINATE(CALCIUM LEVOFOLINATE)(CALCIUI LEVOFOLINATE) [Concomitant]
  5. CEFTRIAXONE SODIUM(CEFTRIAXONE SODIUM)(CEFTRIAXON) SODIUM) [Concomitant]
  6. ALOXI(PALONOSETRON HYDROCHLORIDE)(PALONOSETRON HYDROCHLORIDE) [Concomitant]
  7. CHLORPHENAMINE MALEATE(CHLORPHENAMINE MALEATE) (CHLORPHENAMINE MALEATE) [Concomitant]
  8. DEXART(DEXAMETHASONE SODIUM PHOSPHATE)(DEXAMETHASONE SODIUM PHOSPHATE) [Concomitant]
  9. PAZUFLOXACIN(PAZUFLOXACIN)(PAZUFLOXACIN) [Concomitant]
  10. METHYLPREDNISOLONE SODIUM SUCCINATE(METHYLPREDNISOLONE SODIUM SUCCINATE)(METHYLPREDNISOLONE SODIUM SUCCINATE) [Concomitant]
  11. ENDOXAN(CYCLOPHOSPHAMIDE)(CYCLOPHOSPHAMIDE) [Concomitant]
  12. ELASPOL(SIVELESTAT SODIUM)(SIVELESTAT SODIUM) [Concomitant]
  13. SOL-MELCORT(METHYLPREDNISOLONE SODIUM SUCCINATE)(METHYLPREDNISOLONE SODIUM SUCCINATE) [Concomitant]
  14. ANTITHROMBOTIC AGENTS(ANTITHROMBOTIC AGENTS) [Concomitant]

REACTIONS (7)
  - White blood cell count decreased [None]
  - Neutrophil count decreased [None]
  - Interstitial lung disease [None]
  - Disseminated intravascular coagulation [None]
  - Respiratory failure [None]
  - Diffuse alveolar damage [None]
  - Interstitial lung disease [None]
